FAERS Safety Report 4348120-4 (Version None)
Quarter: 2004Q2

REPORT INFORMATION
  Report Type: 
  Country: None (occurrence: None)
  Receive Date: 20040422
  Receipt Date: 20040407
  Transmission Date: 20050107
  Serious: Yes (Disabling)
  Sender: FDA-Public Use
  Company Number: USA-2004-0014511

PATIENT
  Age: 45 Year
  Sex: Female

DRUGS (2)
  1. CHIROCAINE [Suspect]
     Dosage: 0.3 MG, DAILY, EPIDURAL
     Route: 008
     Dates: start: 20040303, end: 20040305
  2. VANCOMYCIN [Concomitant]

REACTIONS (3)
  - ARACHNOIDITIS [None]
  - PARAESTHESIA [None]
  - PARALYSIS [None]
